FAERS Safety Report 13827170 (Version 1)
Quarter: 2017Q3

REPORT INFORMATION
  Report Type: Spontaneous
  Country: US (occurrence: US)
  Receive Date: 20170802
  Receipt Date: 20170802
  Transmission Date: 20171127
  Serious: No
  Sender: FDA-Public Use
  Company Number: US-ROCHE-652997

PATIENT
  Age: 58 Year
  Sex: Female

DRUGS (4)
  1. MULTIVITAMIN [Concomitant]
     Active Substance: VITAMINS
     Route: 065
  2. ESTROGEN [Concomitant]
     Active Substance: ESTROGENS
     Route: 067
  3. BONIVA [Suspect]
     Active Substance: IBANDRONATE SODIUM
     Indication: OSTEOPENIA
     Route: 048
  4. CALCIUM [Concomitant]
     Active Substance: CALCIUM
     Route: 065

REACTIONS (2)
  - Back pain [Unknown]
  - Arthralgia [Unknown]

NARRATIVE: CASE EVENT DATE: 20090201
